FAERS Safety Report 9747212 (Version 3)
Quarter: 2014Q2

REPORT INFORMATION
  Report Type: Spontaneous
  Country: US (occurrence: US)
  Receive Date: 20131212
  Receipt Date: 20140408
  Transmission Date: 20141212
  Serious: Yes (Death, Hospitalization, Other)
  Sender: FDA-Public Use
  Company Number: US-PFIZER INC-2013350956

PATIENT
  Age: 76 Year
  Sex: Female
  Weight: 61.22 kg

DRUGS (16)
  1. REVATIO [Suspect]
     Indication: PULMONARY HYPERTENSION
     Dosage: 80 MG, DAILY
     Dates: start: 2009, end: 20131112
  2. VENTAVIS [Concomitant]
     Indication: PULMONARY HYPERTENSION
     Dosage: UNK
  3. XOPENEX HFA INHALER [Concomitant]
     Dosage: UNK
  4. ATELVIA [Concomitant]
     Dosage: UNK
  5. CALCIUM [Concomitant]
     Dosage: UNK
  6. LANOXIN [Concomitant]
     Dosage: UNK
  7. ENBREL [Concomitant]
     Dosage: UNK
  8. FUROSEMIDE [Concomitant]
     Dosage: UNK
  9. METHOTREXATE [Concomitant]
     Dosage: UNK
  10. NEURONTIN [Concomitant]
     Dosage: UNK
  11. PROZAC [Concomitant]
     Dosage: UNK
  12. OMEPRAZOLE [Concomitant]
     Dosage: UNK
  13. LETAIRIS [Concomitant]
     Dosage: UNK
  14. ALDACTONE [Concomitant]
     Dosage: UNK
  15. COUMADIN [Concomitant]
     Dosage: UNK
  16. FORTEO [Concomitant]
     Dosage: UNK

REACTIONS (10)
  - Respiratory failure [Fatal]
  - Pneumonia [Fatal]
  - Septic shock [Fatal]
  - Renal failure acute [Fatal]
  - Clostridium difficile infection [Recovered/Resolved]
  - Diarrhoea [Not Recovered/Not Resolved]
  - Syncope [Unknown]
  - Hypotension [Unknown]
  - Dehydration [Unknown]
  - Infection [Unknown]
